FAERS Safety Report 22280924 (Version 2)
Quarter: 2023Q2

REPORT INFORMATION
  Report Type: Report from Study
  Country: CA (occurrence: CA)
  Receive Date: 20230503
  Receipt Date: 20230608
  Transmission Date: 20230721
  Serious: Yes (Hospitalization, Other)
  Sender: FDA-Public Use
  Company Number: CA-ABBVIE-4749811

PATIENT
  Age: 52 Year
  Sex: Female

DRUGS (7)
  1. HUMIRA [Suspect]
     Active Substance: ADALIMUMAB
     Indication: Ankylosing spondylitis
     Dosage: LAST ADMIN DATE: 2023
     Route: 058
     Dates: start: 20141219
  2. HUMIRA [Suspect]
     Active Substance: ADALIMUMAB
     Route: 058
     Dates: start: 202305
  3. SUBOXONE [Concomitant]
     Active Substance: BUPRENORPHINE HYDROCHLORIDE\NALOXONE HYDROCHLORIDE
     Indication: Product used for unknown indication
  4. PREDNISONE [Concomitant]
     Active Substance: PREDNISONE
     Indication: Product used for unknown indication
  5. PANTOPRAZOLE [Concomitant]
     Active Substance: PANTOPRAZOLE
     Indication: Product used for unknown indication
  6. CYTOMEL [Concomitant]
     Active Substance: LIOTHYRONINE SODIUM
     Indication: Product used for unknown indication
  7. LEVOTHYROXINE [Concomitant]
     Active Substance: LEVOTHYROXINE
     Indication: Product used for unknown indication

REACTIONS (14)
  - Colitis ulcerative [Unknown]
  - Small intestinal obstruction [Recovered/Resolved]
  - Arthralgia [Unknown]
  - Small intestinal stenosis [Recovered/Resolved]
  - Pain in extremity [Unknown]
  - Back pain [Unknown]
  - Crohn^s disease [Unknown]
  - White blood cell count decreased [Unknown]
  - Inflammation [Unknown]
  - Scar [Unknown]
  - Neck pain [Unknown]
  - Pain of skin [Unknown]
  - Musculoskeletal stiffness [Unknown]
  - Arthritis [Unknown]

NARRATIVE: CASE EVENT DATE: 20220901
